FAERS Safety Report 19040428 (Version 1)
Quarter: 2021Q1

REPORT INFORMATION
  Report Type: Spontaneous
  Country: FR (occurrence: FR)
  Receive Date: 20210322
  Receipt Date: 20210322
  Transmission Date: 20210420
  Serious: Yes (Hospitalization, Other)
  Sender: FDA-Public Use
  Company Number: FR-OXFORD PHARMACEUTICALS, LLC-2108285

PATIENT
  Age: 86 Year
  Sex: Female

DRUGS (1)
  1. HYDROCHLOROTHIAZIDE TABLETS, 25MG [Suspect]
     Active Substance: HYDROCHLOROTHIAZIDE
     Indication: HYPERTENSION

REACTIONS (2)
  - Drug-induced liver injury [Recovering/Resolving]
  - Cholangitis [Recovering/Resolving]
